FAERS Safety Report 5920523-3 (Version None)
Quarter: 2008Q4

REPORT INFORMATION
  Report Type: 
  Country: None (occurrence: None)
  Receive Date: 20081016
  Receipt Date: 20081008
  Transmission Date: 20090506
  Serious: Yes (Death, Hospitalization)
  Sender: FDA-Public Use
  Company Number: B0541780A

PATIENT
  Age: 91 Year
  Sex: Male

DRUGS (5)
  1. DIGOXIN [Suspect]
     Indication: CARDIAC FAILURE
     Dosage: .0625MG PER DAY
     Route: 065
     Dates: start: 20060801
  2. SPIRONOLACTONE [Suspect]
     Indication: CARDIAC FAILURE
     Dosage: 25MG PER DAY
     Route: 065
     Dates: start: 20060801
  3. ENALAPRIL MALEATE [Suspect]
     Indication: CARDIAC FAILURE
     Dosage: 5MG PER DAY
     Route: 065
     Dates: start: 20010101
  4. FUROSEMIDE [Concomitant]
     Indication: CARDIAC FAILURE
     Dosage: 40MG PER DAY
     Route: 065
  5. ACENOCOUMAROL [Concomitant]

REACTIONS (5)
  - CARDIAC FAILURE [None]
  - HYPERKALAEMIA [None]
  - LOSS OF CONSCIOUSNESS [None]
  - PULMONARY OEDEMA [None]
  - SYNCOPE [None]
